FAERS Safety Report 10276257 (Version 1)
Quarter: 2014Q2

REPORT INFORMATION
  Report Type: Spontaneous
  Country: US (occurrence: None)
  Receive Date: 20140630
  Receipt Date: 20140630
  Transmission Date: 20141212
  Serious: Yes (Hospitalization)
  Sender: FDA-Public Use
  Company Number: FK201402539

PATIENT
  Age: 28 Year
  Sex: Female

DRUGS (4)
  1. FLUDARABINE (MANUFACTURER UNKNOWN) (FLUDARABINE PHOSPHATE) (FLUDARABINE PHOSPHATE) [Suspect]
     Indication: STEM CELL TRANSPLANT
  2. CYCLOPHOSPHAMIDE [Suspect]
     Indication: STEM CELL TRANSPLANT
  3. BUSULFAN (BUSULFAN) (BUSULFAN) [Suspect]
     Indication: STEM CELL TRANSPLANT
  4. ANTITHYMOCYTE GLOBULIN [Suspect]
     Indication: STEM CELL TRANSPLANT

REACTIONS (8)
  - Diffuse large B-cell lymphoma [None]
  - Transplant rejection [None]
  - Renal failure [None]
  - Fusarium infection [None]
  - Candida infection [None]
  - Adenovirus infection [None]
  - BK virus infection [None]
  - Cytomegalovirus viraemia [None]
